FAERS Safety Report 12115685 (Version 2)
Quarter: 2016Q1

REPORT INFORMATION
  Report Type: Spontaneous
  Country: US (occurrence: US)
  Receive Date: 20160225
  Receipt Date: 20160311
  Transmission Date: 20160526
  Serious: No
  Sender: FDA-Public Use
  Company Number: US-GLAXOSMITHKLINE-US2016GSK026124

PATIENT
  Age: 71 Year
  Sex: Male

DRUGS (1)
  1. COREG CR [Suspect]
     Active Substance: CARVEDILOL PHOSPHATE
     Indication: HYPERTENSION
     Dosage: 20 MG
     Route: 065

REACTIONS (1)
  - Influenza [Unknown]

NARRATIVE: CASE EVENT DATE: 201602
